FAERS Safety Report 7401336-2 (Version None)
Quarter: 2011Q2

REPORT INFORMATION
  Report Type: 
  Country: None (occurrence: None)
  Receive Date: 20110407
  Receipt Date: 20110326
  Transmission Date: 20111010
  Serious: Yes (Other)
  Sender: FDA-Public Use
  Company Number: CA-GENENTECH-311303

PATIENT
  Sex: Female
  Weight: 72.6 kg

DRUGS (14)
  1. BENADRYL (UNITED STATES) [Concomitant]
     Indication: PRODUCT USED FOR UNKNOWN INDICATION
     Dosage: 50 MG, X1
     Route: 048
     Dates: start: 20110315, end: 20110315
  2. SOLU-MEDROL [Concomitant]
     Indication: PREMEDICATION
     Dosage: 100 MG, X1
     Route: 048
     Dates: start: 20110315, end: 20110315
  3. ZINC [Concomitant]
     Indication: PRODUCT USED FOR UNKNOWN INDICATION
  4. MENTHOL [Concomitant]
     Indication: PRODUCT USED FOR UNKNOWN INDICATION
  5. SODIUM CITRATE [Concomitant]
     Indication: PRODUCT USED FOR UNKNOWN INDICATION
  6. AMMONIUM CHLORIDE [Concomitant]
     Indication: PRODUCT USED FOR UNKNOWN INDICATION
  7. CALAMINE [Concomitant]
     Indication: PRODUCT USED FOR UNKNOWN INDICATION
  8. ARAVA [Concomitant]
     Indication: RHEUMATOID ARTHRITIS
     Dosage: UNK
     Route: 048
  9. ASPIRIN [Concomitant]
     Indication: PRODUCT USED FOR UNKNOWN INDICATION
     Dosage: UNK
  10. ACETAMINOPHEN [Concomitant]
     Indication: PREMEDICATION
     Dosage: 650 MG, X1
     Route: 048
     Dates: start: 20110315, end: 20110315
  11. RITUXIMAB [Suspect]
     Indication: RHEUMATOID ARTHRITIS
     Dosage: 1000 MG, DAYS 1+15
     Route: 042
     Dates: start: 20100225, end: 20110315
  12. ACRIVASTINE [Concomitant]
     Indication: PRODUCT USED FOR UNKNOWN INDICATION
     Dosage: UNK
     Route: 048
  13. CODEINE PHOSPHATE [Concomitant]
     Indication: PRODUCT USED FOR UNKNOWN INDICATION
  14. CALCIUM [Concomitant]
     Indication: PRODUCT USED FOR UNKNOWN INDICATION
     Dosage: UNK

REACTIONS (2)
  - LOWER RESPIRATORY TRACT INFECTION [None]
  - SJOGREN'S SYNDROME [None]
